FAERS Safety Report 17617748 (Version 1)
Quarter: 2020Q2

REPORT INFORMATION
  Report Type: Spontaneous
  Country: US (occurrence: US)
  Receive Date: 20200402
  Receipt Date: 20200402
  Transmission Date: 20200713
  Serious: Yes (Hospitalization)
  Sender: FDA-Public Use
  Company Number: US-ABBVIE-20K-163-3348379-00

PATIENT
  Age: 75 Year
  Sex: Male
  Weight: 63.56 kg

DRUGS (1)
  1. HUMIRA [Suspect]
     Active Substance: ADALIMUMAB
     Indication: COLITIS ULCERATIVE
     Route: 058

REACTIONS (7)
  - Cough [Recovering/Resolving]
  - Influenza [Unknown]
  - Pneumonia [Unknown]
  - Respiratory disorder [Recovering/Resolving]
  - Coronavirus infection [Unknown]
  - Respiratory tract congestion [Recovering/Resolving]
  - General physical condition abnormal [Not Recovered/Not Resolved]

NARRATIVE: CASE EVENT DATE: 202003
